FAERS Safety Report 22185091 (Version 2)
Quarter: 2023Q2

REPORT INFORMATION
  Report Type: Spontaneous
  Country: US (occurrence: None)
  Receive Date: 20230407
  Receipt Date: 20230412
  Transmission Date: 20230721
  Serious: Yes (Other)
  Sender: FDA-Public Use
  Company Number: 2023A079842

PATIENT
  Sex: Female

DRUGS (3)
  1. SEROQUEL [Suspect]
     Active Substance: QUETIAPINE FUMARATE
     Indication: Sleep disorder
     Route: 048
     Dates: start: 201805, end: 201810
  2. SEROQUEL [Suspect]
     Active Substance: QUETIAPINE FUMARATE
     Indication: Sleep disorder
     Route: 048
  3. UNSPECIFIED INGREDIENT [Suspect]
     Active Substance: UNSPECIFIED INGREDIENT

REACTIONS (6)
  - Toxicity to various agents [Unknown]
  - Anger [Unknown]
  - Frequent bowel movements [Unknown]
  - Stress [Unknown]
  - Irritability [Unknown]
  - Off label use [Unknown]
